FAERS Safety Report 8785118 (Version 5)
Quarter: 2014Q1

REPORT INFORMATION
  Report Type: Report from Study
  Country: JP (occurrence: JP)
  Receive Date: 20120914
  Receipt Date: 20140122
  Transmission Date: 20141002
  Serious: Yes (Other)
  Sender: FDA-Public Use
  Company Number: JP-VERTEX PHARMACEUTICAL INC.-2012-020506

PATIENT
  Age: 70 Year
  Sex: Male

DRUGS (52)
  1. VX-950 (TELAPREVIR) [Suspect]
     Indication: CHRONIC HEPATITIS C
     Dosage: 1500 MG, QD
     Route: 048
     Dates: start: 20120228, end: 20120522
  2. RIBAVIRIN [Suspect]
     Indication: CHRONIC HEPATITIS C
     Dosage: 400 MG, QD
     Route: 048
     Dates: start: 20120228, end: 20120611
  3. RIBAVIRIN [Suspect]
     Dosage: 200 MG, QD
     Route: 048
     Dates: start: 20120612, end: 20120702
  4. RIBAVIRIN [Suspect]
     Dosage: 400 MG, QD
     Route: 048
     Dates: start: 20120731, end: 20120904
  5. PEGINTERFERON ALFA-2B [Suspect]
     Indication: CHRONIC HEPATITIS C
     Dosage: 1.0 ?G/KG, QW
     Route: 058
     Dates: start: 20120228, end: 20120529
  6. PEGINTERFERON ALFA-2B [Suspect]
     Dosage: 1.5 ?G/KG, QW
     Route: 058
     Dates: start: 20120605, end: 20120626
  7. PEGINTERFERON ALFA-2B [Suspect]
     Dosage: 0.8 ?G/KG, QW
     Route: 058
     Dates: start: 20120731, end: 20120904
  8. SEIBULE [Concomitant]
     Dosage: 150 MG, QD
     Route: 048
     Dates: end: 20120717
  9. CLARITIN [Concomitant]
     Dosage: 10 MG, UNK
     Route: 048
     Dates: end: 20120717
  10. ALDACTONE A [Concomitant]
     Dosage: 25 MG, UNK
     Route: 048
     Dates: end: 20120508
  11. AMARYL [Concomitant]
     Dosage: 3 MG, QD
     Route: 048
  12. AMARYL [Concomitant]
     Dosage: 1 MG, QD
     Route: 048
  13. AMARYL [Concomitant]
     Dosage: 4 MG, QD
     Route: 048
     Dates: end: 20120311
  14. AMARYL [Concomitant]
     Dosage: 2 MG, QD
     Route: 048
     Dates: start: 20120312, end: 20120312
  15. AMARYL [Concomitant]
     Dosage: 1 MG, QD
     Dates: start: 20120313
  16. PIOGLITAZONE [Concomitant]
     Dosage: 7.5 MG, QD
     Route: 048
     Dates: end: 20120717
  17. PARIET [Concomitant]
     Dosage: 10 MG, QD
     Route: 048
     Dates: end: 20120420
  18. PARIET [Concomitant]
     Dosage: 20 MG, QD
     Route: 048
     Dates: start: 20120421, end: 20120704
  19. PARIET [Concomitant]
     Dosage: 20 MG, QD
     Route: 048
     Dates: start: 20120731
  20. TSUMARA MAOTO EXTRACT FINE GRANULES FOR ETHICAL USE [Concomitant]
     Dosage: 7.5 G, QD
     Route: 048
  21. TSUMURA SHAKUYAKUKANZOTO EXTRACT GRANULES FOR ETHICAL USE [Concomitant]
     Dosage: 7.5 G, QD
     Route: 048
     Dates: end: 20120717
  22. LOXONIN [Concomitant]
     Dosage: 180 MG, QD
     Route: 048
  23. HIBON [Concomitant]
     Dosage: 60 MG, QD
     Route: 048
     Dates: end: 20120717
  24. MUCOSOLVAN [Concomitant]
     Dosage: 45 MG, QD
     Route: 048
     Dates: end: 20120717
  25. BISOLVON [Concomitant]
     Dosage: 12 MG, QD
     Route: 048
     Dates: end: 20120312
  26. METHYCOBAL [Concomitant]
     Dosage: 1500 ?G, QD
     Route: 048
  27. EPADEL-S [Concomitant]
     Dosage: 1800 MG, QD
     Route: 048
     Dates: end: 20120312
  28. CINAL [Concomitant]
     Dosage: 3 DF, QD
     Route: 048
     Dates: end: 20120312
  29. ALINAMIN F [Concomitant]
     Dosage: 75 MG, QD
     Route: 048
     Dates: end: 20120312
  30. EMPYNASE P [Concomitant]
     Dosage: 27000 DF, QD
     Route: 048
  31. EMPYNASE P [Concomitant]
     Dosage: 9000 DF, QD
     Route: 048
     Dates: end: 20120717
  32. BIOFERMIN [Concomitant]
     Dosage: 3 G, QD
     Route: 048
     Dates: end: 20120717
  33. LOPEMIN [Concomitant]
     Dosage: 2 MG, QD
     Route: 048
  34. PROMAC [Concomitant]
     Dosage: 150 MG, QD
     Route: 048
     Dates: end: 20120717
  35. HARNAL D [Concomitant]
     Dosage: 0.2 MG, QD
     Route: 048
     Dates: end: 20120717
  36. PHENOBAL [Concomitant]
     Dosage: 30 MG, QD
     Route: 048
     Dates: end: 20120717
  37. MUCOSTA [Concomitant]
     Dosage: 300 MG, QD
     Route: 048
     Dates: start: 20120228
  38. PANTOSIN [Concomitant]
     Dosage: 1.5 G, QD
     Route: 048
     Dates: start: 20120705, end: 20120708
  39. MAGMITT [Concomitant]
     Dosage: 1500 MG, QD
     Route: 048
     Dates: start: 20120705, end: 20120708
  40. LAXOBERON [Concomitant]
     Dosage: UNK, PRN
     Route: 048
     Dates: start: 20120705, end: 20120706
  41. LYRICA [Concomitant]
     Dosage: 37.5 MG, QD
     Route: 048
     Dates: start: 20120705, end: 20120730
  42. KERATINAMIN [Concomitant]
     Dosage: Q.S.
     Route: 061
     Dates: start: 20120814
  43. DEXALTIN [Concomitant]
     Dosage: Q.S.
     Route: 061
     Dates: start: 20120529
  44. ANTEBATE [Concomitant]
     Dosage: Q.S.
     Route: 061
     Dates: start: 20120529
  45. XYZAL [Concomitant]
     Dosage: 5 MG, QD
     Route: 048
     Dates: start: 20120814
  46. TAURINE [Concomitant]
     Dosage: 3 G, QD
     Route: 048
     Dates: start: 20120424
  47. LENDORMIN [Concomitant]
     Dosage: .25 MG, QD
     Route: 048
  48. CYLOFT [Concomitant]
     Dosage: 150 MG, QD
     Route: 048
  49. VOLTAREN [Concomitant]
     Dosage: UNK, PRN
     Route: 054
     Dates: start: 20120228
  50. LIVACT [Concomitant]
     Dosage: 12.45 G, QD
     Route: 048
  51. MYONAL [Concomitant]
     Dosage: 50 MG, QD
     Route: 048
     Dates: start: 20120508, end: 20120717
  52. ADEROXAL [Concomitant]
     Dosage: 60 MG, QD
     Route: 048
     Dates: start: 20120501, end: 20120717

REACTIONS (1)
  - Hepatocellular carcinoma [Recovered/Resolved]
